FAERS Safety Report 10488500 (Version 3)
Quarter: 2014Q4

REPORT INFORMATION
  Report Type: Spontaneous
  Country: JP (occurrence: JP)
  Receive Date: 20141002
  Receipt Date: 20141226
  Transmission Date: 20150528
  Serious: Yes (Life-Threatening, Hospitalization)
  Sender: FDA-Public Use
  Company Number: JP-JNJFOC-20140925784

PATIENT
  Age: 79 Year
  Sex: Female

DRUGS (9)
  1. WARFARIN POTASSIUM [Interacting]
     Active Substance: WARFARIN POTASSIUM
     Indication: PRODUCT USED FOR UNKNOWN INDICATION
     Route: 048
     Dates: start: 2001, end: 20070907
  2. LASIX [Concomitant]
     Active Substance: FUROSEMIDE
     Route: 048
  3. LENDORMIN D [Concomitant]
     Active Substance: BROTIZOLAM
     Route: 048
  4. ZANTAC [Concomitant]
     Active Substance: RANITIDINE HYDROCHLORIDE
     Route: 048
  5. ASPIRIN. [Concomitant]
     Active Substance: ASPIRIN
     Route: 048
  6. FLORID ORAL GEL 2% [Suspect]
     Active Substance: MICONAZOLE
     Indication: ORAL CANDIDIASIS
     Route: 049
     Dates: start: 20070828, end: 20070901
  7. BAYASPIRIN [Concomitant]
     Active Substance: ASPIRIN
     Route: 065
     Dates: start: 2001, end: 20070907
  8. RYTHMODAN [Concomitant]
     Active Substance: DISOPYRAMIDE
     Route: 048
  9. PURSENNID [Concomitant]
     Active Substance: SENNOSIDES A AND B
     Route: 048

REACTIONS (4)
  - Drug interaction [Recovering/Resolving]
  - Haemorrhage intracranial [Recovering/Resolving]
  - International normalised ratio increased [Recovered/Resolved]
  - Post procedural haemorrhage [Recovered/Resolved]

NARRATIVE: CASE EVENT DATE: 20070905
